FAERS Safety Report 7057660-9 (Version None)
Quarter: 2010Q4

REPORT INFORMATION
  Report Type: 
  Country: None (occurrence: None)
  Receive Date: 20101022
  Receipt Date: 20101015
  Transmission Date: 20110411
  Serious: Yes (Death)
  Sender: FDA-Public Use
  Company Number: US-ROCHE-735244

PATIENT
  Sex: Female

DRUGS (2)
  1. BEVACIZUMAB [Suspect]
     Indication: MENINGIOMA
     Dosage: LAST DOSE PRIOR TO SAE: 15 SEPTEMBER 2010.
     Route: 065
     Dates: start: 20100521
  2. EVEROLIMUS [Suspect]
     Indication: MENINGIOMA
     Dosage: LAST DOSE PRIOR TO SAE: 15 SEPTEMBER 2010.
     Route: 065
     Dates: start: 20100521

REACTIONS (1)
  - DISEASE PROGRESSION [None]
